FAERS Safety Report 23534230 (Version 1)
Quarter: 2024Q1

REPORT INFORMATION
  Report Type: Report from Study
  Country: US (occurrence: US)
  Receive Date: 20240216
  Receipt Date: 20240216
  Transmission Date: 20240409
  Serious: Yes (Hospitalization, Other)
  Sender: FDA-Public Use
  Company Number: US-ABBVIE-5583084

PATIENT
  Age: 77 Year
  Sex: Female
  Weight: 83.46 kg

DRUGS (8)
  1. HUMIRA [Suspect]
     Active Substance: ADALIMUMAB
     Indication: Sarcoidosis
     Dosage: FORM STRENGTH: 40 MG?CITRATE FREE
     Route: 058
     Dates: start: 20230524, end: 202312
  2. PROBIOTICS NOS [Concomitant]
     Active Substance: PROBIOTICS NOS
     Indication: Product used for unknown indication
  3. FIBER [Concomitant]
     Indication: Product used for unknown indication
  4. ASPIRIN [Concomitant]
     Active Substance: ASPIRIN
     Indication: Anticoagulant therapy
  5. LOSARTAN [Concomitant]
     Active Substance: LOSARTAN
     Indication: Hypertension
  6. METOPROLOL [Concomitant]
     Active Substance: METOPROLOL
     Indication: Product used for unknown indication
  7. CLOPIDOGREL [Concomitant]
     Active Substance: CLOPIDOGREL BISULFATE
     Indication: Anticoagulant therapy
  8. VESICARE [Concomitant]
     Active Substance: SOLIFENACIN SUCCINATE
     Indication: Bladder disorder

REACTIONS (12)
  - Peripheral endarterectomy [Recovering/Resolving]
  - Pyrexia [Recovering/Resolving]
  - Seroma [Recovering/Resolving]
  - Illness [Not Recovered/Not Resolved]
  - Infection [Not Recovered/Not Resolved]
  - Cerebrovascular accident [Recovering/Resolving]
  - Off label use [Not Recovered/Not Resolved]
  - Peripheral ischaemia [Recovering/Resolving]
  - Enterobacter infection [Recovering/Resolving]
  - Arteriosclerosis [Recovering/Resolving]
  - Sepsis [Recovering/Resolving]
  - Carotid angioplasty [Unknown]

NARRATIVE: CASE EVENT DATE: 20231201
